FAERS Safety Report 6152401-1 (Version None)
Quarter: 2009Q2

REPORT INFORMATION
  Report Type: 
  Country: None (occurrence: None)
  Receive Date: 20090413
  Receipt Date: 20090331
  Transmission Date: 20091009
  Serious: Yes (Other)
  Sender: FDA-Public Use
  Company Number: FR-SOLVAY-00209001936

PATIENT
  Age: 40 Year
  Sex: Female

DRUGS (1)
  1. COVERSYL 4 MG [Suspect]
     Indication: ESSENTIAL HYPERTENSION
     Dosage: DAILY DOSE:  UNKNOWN
     Route: 048
     Dates: start: 20090303

REACTIONS (3)
  - HYPERTENSIVE CRISIS [None]
  - TINNITUS [None]
  - VOMITING [None]
